FAERS Safety Report 21418578 (Version 3)
Quarter: 2023Q1

REPORT INFORMATION
  Report Type: Spontaneous
  Country: GB (occurrence: GB)
  Receive Date: 20221006
  Receipt Date: 20230215
  Transmission Date: 20230418
  Serious: Yes (Hospitalization, Other)
  Sender: FDA-Public Use
  Company Number: GB-MYLANLABS-2022M1111351

PATIENT
  Sex: Male

DRUGS (2)
  1. CLOZARIL [Suspect]
     Active Substance: CLOZAPINE
     Indication: Schizophrenia
     Dosage: UNK
     Route: 048
     Dates: start: 20070828, end: 202210
  2. CLOZARIL [Suspect]
     Active Substance: CLOZAPINE
     Indication: Schizoaffective disorder

REACTIONS (10)
  - Coma [Unknown]
  - Urinary tract infection [Unknown]
  - Immunodeficiency [Unknown]
  - Small intestinal obstruction [Recovered/Resolved]
  - Pneumonia [Unknown]
  - Respiratory arrest [Unknown]
  - Illness [Unknown]
  - COVID-19 [Unknown]
  - Constipation [Unknown]
  - Off label use [Unknown]
